FAERS Safety Report 7286736-6 (Version None)
Quarter: 2011Q1

REPORT INFORMATION
  Report Type: 
  Country: None (occurrence: None)
  Receive Date: 20110210
  Receipt Date: 20110201
  Transmission Date: 20110831
  Serious: Yes (Death)
  Sender: FDA-Public Use
  Company Number: JP-AMGEN-JPNCT2010009634

PATIENT
  Age: 61 Year
  Sex: Male
  Weight: 60 kg

DRUGS (20)
  1. UFT [Suspect]
     Indication: COLORECTAL CANCER
     Route: 048
     Dates: start: 20100901, end: 20101001
  2. UZEL [Suspect]
     Indication: COLORECTAL CANCER
     Route: 048
     Dates: start: 20100901, end: 20101001
  3. VITAMEDIN CAPSULE [Concomitant]
     Route: 048
  4. VITAMEDIN [Concomitant]
     Route: 048
  5. 2MG CERCINE TABLETS [Concomitant]
  6. MUCOSTA [Concomitant]
  7. FLIVAS OD [Concomitant]
     Indication: BENIGN PROSTATIC HYPERPLASIA
     Route: 048
  8. PANITUMUMAB [Suspect]
     Indication: COLORECTAL CANCER
     Dosage: 6 MG/KG, Q2WK
     Route: 041
     Dates: start: 20101111, end: 20101111
  9. BLOPRESS TABLETS 12 [Concomitant]
  10. CORTICOSTEROIDS [Concomitant]
     Indication: PROPHYLAXIS
     Route: 065
  11. LOPEMIN [Concomitant]
     Indication: DIARRHOEA
     Route: 048
  12. CLARITH [Concomitant]
     Route: 048
  13. MOHRUS TAPE L [Concomitant]
     Route: 062
  14. HALCION [Concomitant]
     Indication: INSOMNIA
     Route: 048
  15. BUP-4 [Concomitant]
     Indication: BENIGN PROSTATIC HYPERPLASIA
     Route: 048
  16. PL [Concomitant]
     Route: 048
  17. KYTRIL [Concomitant]
     Route: 041
     Dates: start: 20101111, end: 20101111
  18. AVASTIN [Suspect]
     Indication: COLORECTAL CANCER
     Route: 041
     Dates: start: 20100901, end: 20101001
  19. LOXONIN [Concomitant]
  20. DEXART [Concomitant]
     Route: 041
     Dates: start: 20101111, end: 20101111

REACTIONS (1)
  - INTERSTITIAL LUNG DISEASE [None]
